FAERS Safety Report 25700614 (Version 1)
Quarter: 2025Q3

REPORT INFORMATION
  Report Type: Spontaneous
  Country: CN (occurrence: CN)
  Receive Date: 20250819
  Receipt Date: 20250819
  Transmission Date: 20251021
  Serious: Yes (Other)
  Sender: MERCK SHARP & DOHME LLC
  Company Number: CN-BASILEA PHARMACEUTICA DEUTSCHLAND GMBH-CN-BAS-24-00602

PATIENT
  Age: 66 Year
  Sex: Male

DRUGS (2)
  1. CASPOFUNGIN [Suspect]
     Active Substance: CASPOFUNGIN
     Indication: Bronchopulmonary aspergillosis
     Route: 065
  2. CRESEMBA [Suspect]
     Active Substance: ISAVUCONAZONIUM SULFATE
     Indication: Bronchopulmonary aspergillosis
     Route: 065

REACTIONS (5)
  - Acinetobacter infection [Unknown]
  - Acinetobacter test positive [Unknown]
  - Haemoptysis [Unknown]
  - Tracheoscopy abnormal [Unknown]
  - Drug ineffective [Unknown]
